FAERS Safety Report 20214266 (Version 4)
Quarter: 2023Q1

REPORT INFORMATION
  Report Type: Report from Study
  Country: US (occurrence: US)
  Receive Date: 20211221
  Receipt Date: 20230301
  Transmission Date: 20230418
  Serious: Yes (Other)
  Sender: FDA-Public Use
  Company Number: US-KYOWAKIRIN-2021BKK021075

PATIENT

DRUGS (3)
  1. CRYSVITA [Suspect]
     Active Substance: BUROSUMAB-TWZA
     Indication: Hereditary hypophosphataemic rickets
     Dosage: 90 MG, EVERY 28 DAYS
     Route: 058
     Dates: start: 20180917
  2. CRYSVITA [Suspect]
     Active Substance: BUROSUMAB-TWZA
     Dosage: 90 MG, EVERY 28 DAYS
     Route: 058
  3. CRYSVITA [Suspect]
     Active Substance: BUROSUMAB-TWZA
     Dosage: 90 MG, EVERY 28 DAYS
     Route: 058

REACTIONS (14)
  - Femur fracture [Unknown]
  - Nausea [Unknown]
  - Dental caries [Unknown]
  - Tooth abscess [Unknown]
  - Tooth fracture [Unknown]
  - Tibia fracture [Unknown]
  - Joint stiffness [Unknown]
  - Arthralgia [Unknown]
  - Back pain [Unknown]
  - Blood phosphorus decreased [Recovered/Resolved]
  - Blood creatinine decreased [Unknown]
  - Blood urea increased [Unknown]
  - Blood alkaline phosphatase increased [Unknown]
  - Infection [Unknown]

NARRATIVE: CASE EVENT DATE: 20210304
